FAERS Safety Report 9078210 (Version 1)
Quarter: 2013Q1

REPORT INFORMATION
  Report Type: Spontaneous
  Country: US (occurrence: US)
  Receive Date: 20130130
  Receipt Date: 20130130
  Transmission Date: 20140127
  Serious: No
  Sender: FDA-Public Use
  Company Number: US-ABBOTT-12P-163-0975616-00

PATIENT
  Sex: Male

DRUGS (1)
  1. HUMIRA [Suspect]
     Indication: PRODUCT USED FOR UNKNOWN INDICATION
     Route: 058
     Dates: start: 2007

REACTIONS (5)
  - Incorrect dose administered by device [Unknown]
  - Drug dose omission [Unknown]
  - Device malfunction [Unknown]
  - Drug dose omission [Unknown]
  - Injection site pain [Unknown]
